FAERS Safety Report 7543317-4 (Version None)
Quarter: 2011Q2

REPORT INFORMATION
  Report Type: 
  Country: None (occurrence: None)
  Receive Date: 20110524
  Receipt Date: 20110127
  Transmission Date: 20111010
  Serious: No
  Sender: FDA-Public Use
  Company Number: 021589

PATIENT
  Sex: Female

DRUGS (3)
  1. CIMZIA [Suspect]
  2. CIMZIA [Suspect]
     Indication: CROHN'S DISEASE
     Dosage: 400 MG 1X/3 WEEKS SUBCUTANEOUS, 400 MG 1X/4 WEEKS SUBCUTANEOUS
     Route: 058
     Dates: start: 20110124
  3. CIMZIA [Suspect]
     Indication: CROHN'S DISEASE
     Dosage: 400 MG 1X/3 WEEKS SUBCUTANEOUS, 400 MG 1X/4 WEEKS SUBCUTANEOUS
     Route: 058
     Dates: start: 20090401

REACTIONS (3)
  - HAEMATOCHEZIA [None]
  - PAIN [None]
  - DIARRHOEA [None]
